FAERS Safety Report 16586336 (Version 1)
Quarter: 2019Q3

REPORT INFORMATION
  Report Type: Spontaneous
  Country: FR (occurrence: FR)
  Receive Date: 20190717
  Receipt Date: 20190717
  Transmission Date: 20191004
  Serious: Yes (Hospitalization)
  Sender: FDA-Public Use
  Company Number: FR-TEVA-2019-FR-1077393

PATIENT
  Age: 32 Year
  Sex: Female
  Weight: 72 kg

DRUGS (3)
  1. LYSANXIA [Concomitant]
     Active Substance: PRAZEPAM
     Route: 048
  2. KETOPROFENE [Suspect]
     Active Substance: KETOPROFEN
     Indication: PAIN
     Dosage: 100MG
     Route: 048
     Dates: start: 20190501, end: 20190501
  3. SEROPLEX 20 MG, COMPRIME PELLICULE SECABLE [Concomitant]
     Active Substance: ESCITALOPRAM OXALATE
     Route: 048

REACTIONS (3)
  - Infection [Recovered/Resolved]
  - Bacterial infection [Recovered/Resolved]
  - Pyelonephritis acute [Recovered/Resolved]

NARRATIVE: CASE EVENT DATE: 20190501
